FAERS Safety Report 18539965 (Version 7)
Quarter: 2021Q3

REPORT INFORMATION
  Report Type: Spontaneous
  Country: US (occurrence: US)
  Receive Date: 20201124
  Receipt Date: 20210924
  Transmission Date: 20211014
  Serious: No
  Sender: FDA-Public Use
  Company Number: US-PFIZER INC-2020457591

PATIENT
  Age: 5 Year
  Sex: Male

DRUGS (2)
  1. GENOTROPIN [Suspect]
     Active Substance: SOMATROPIN
     Indication: BLOOD GROWTH HORMONE DECREASED
     Dosage: 3MG OR 0.3MG, NOT SURE WHICH?THEY TURN DIAL TO 3, NIGHTLY
     Route: 058
     Dates: start: 20201020, end: 20201116
  2. GENOTROPIN [Suspect]
     Active Substance: SOMATROPIN
     Dosage: 3MG OR 0.3MG, NOT SURE WHICH?THEY TURN DIAL TO 3, NIGHTLY
     Route: 058
     Dates: start: 20201020, end: 20201116

REACTIONS (4)
  - Poor quality device used [Unknown]
  - Device use error [Unknown]
  - Device breakage [Unknown]
  - Drug dose omission by device [Unknown]

NARRATIVE: CASE EVENT DATE: 202011
